FAERS Safety Report 7435552-0 (Version None)
Quarter: 2011Q2

REPORT INFORMATION
  Report Type: 
  Country: None (occurrence: None)
  Receive Date: 20110425
  Receipt Date: 20110411
  Transmission Date: 20111010
  Serious: Yes (Death)
  Sender: FDA-Public Use
  Company Number: US-CELGENEUS-163-21880-11041313

PATIENT
  Sex: Female

DRUGS (8)
  1. LASIX [Concomitant]
     Route: 065
  2. ARICEPT [Concomitant]
     Route: 065
  3. REVLIMID [Suspect]
     Indication: MULTIPLE MYELOMA
     Dosage: 15 MILLIGRAM
     Route: 048
     Dates: start: 20100928, end: 20110323
  4. NAMENDA [Concomitant]
     Route: 065
  5. DEXAMETHASONE [Concomitant]
     Route: 065
  6. ALBUTEROL [Concomitant]
     Route: 065
  7. CLONIDINE [Concomitant]
     Route: 065
  8. HUMALOG [Concomitant]
     Route: 065

REACTIONS (1)
  - DEATH [None]
